FAERS Safety Report 5253080-8 (Version None)
Quarter: 2007Q1

REPORT INFORMATION
  Report Type: 
  Country: None (occurrence: None)
  Receive Date: 20061201
  Receipt Date: 20060825
  Transmission Date: 20070707
  Serious: No
  Sender: FDA-Public Use
  Company Number: 2006PV020136

PATIENT
  Age: 53 Year
  Sex: Female
  Weight: 73.0291 kg

DRUGS (5)
  1. BYETTA [Suspect]
     Indication: DIABETES MELLITUS NON-INSULIN-DEPENDENT
     Dosage: 5 MCG; BID; QD; SC
     Route: 058
     Dates: start: 20060821, end: 20060821
  2. BYETTA [Suspect]
     Indication: DIABETES MELLITUS NON-INSULIN-DEPENDENT
     Dosage: 5 MCG; BID; QD; SC
     Route: 058
     Dates: start: 20060822, end: 20060822
  3. BYETTA [Suspect]
     Indication: DIABETES MELLITUS NON-INSULIN-DEPENDENT
     Dosage: 5 MCG; BID; QD; SC
     Route: 058
     Dates: start: 20060823, end: 20060823
  4. BYETTA [Suspect]
     Indication: DIABETES MELLITUS NON-INSULIN-DEPENDENT
     Dosage: 5 MCG; BID; QD; SC
     Route: 058
     Dates: start: 20060824, end: 20060825
  5. GLYBURIDE [Concomitant]

REACTIONS (10)
  - ABDOMINAL PAIN [None]
  - BACK PAIN [None]
  - BLOOD GLUCOSE DECREASED [None]
  - BODY TEMPERATURE INCREASED [None]
  - CONSTIPATION [None]
  - DIARRHOEA [None]
  - DIZZINESS [None]
  - NAUSEA [None]
  - TREMOR [None]
  - VOMITING [None]
